FAERS Safety Report 7545406-7 (Version None)
Quarter: 2011Q2

REPORT INFORMATION
  Report Type: 
  Country: None (occurrence: None)
  Receive Date: 20110607
  Receipt Date: 20110525
  Transmission Date: 20111010
  Serious: Yes (Disabling)
  Sender: FDA-Public Use
  Company Number: CIP11000715

PATIENT
  Age: 76 Year
  Sex: Male

DRUGS (6)
  1. ENBREL [Concomitant]
  2. MACROBID [Suspect]
     Indication: URINARY TRACT INFECTION
     Dosage: /DOSAGE/ REGIMEN, ORAL
     Route: 048
     Dates: start: 20080101
  3. BACTRIM [Suspect]
     Indication: URINARY TRACT INFECTION
     Dosage: DOSAGE/REGIMEN;
     Dates: start: 20080101
  4. ASPIRIN [Concomitant]
  5. ATELVIA [Suspect]
     Indication: OSTEOPOROSIS
     Dosage: 35 MG ONCE A WEEK, ORAL
     Route: 048
  6. ACTONEL [Suspect]
     Indication: OSTEOPOROSIS
     Dosage: ORAL
     Route: 048

REACTIONS (6)
  - AUTONOMIC NEUROPATHY [None]
  - DYSURIA [None]
  - URINARY RETENTION [None]
  - CONDITION AGGRAVATED [None]
  - CONSTIPATION [None]
  - UNEVALUABLE EVENT [None]
